FAERS Safety Report 11046744 (Version 1)
Quarter: 2015Q2

REPORT INFORMATION
  Report Type: Spontaneous
  Country: FR (occurrence: FR)
  Receive Date: 20150420
  Receipt Date: 20150420
  Transmission Date: 20150821
  Serious: Yes (Hospitalization)
  Sender: FDA-Public Use
  Company Number: FR-ROCHE-1564549

PATIENT
  Age: 91 Year
  Sex: Female

DRUGS (8)
  1. FORLAX [Concomitant]
     Active Substance: POLYETHYLENE GLYCOL 4000
  2. EUPANTOL [Concomitant]
     Active Substance: PANTOPRAZOLE SODIUM
  3. COUMADINE [Suspect]
     Active Substance: WARFARIN SODIUM
     Indication: PRODUCT USED FOR UNKNOWN INDICATION
     Route: 048
     Dates: end: 20150114
  4. LEVEMIR [Concomitant]
     Active Substance: INSULIN DETEMIR
  5. NEOMERCAZOLE [Concomitant]
     Active Substance: CARBIMAZOLE
  6. AZOPT [Concomitant]
     Active Substance: BRINZOLAMIDE
  7. ROCEPHINE [Suspect]
     Active Substance: CEFTRIAXONE SODIUM
     Indication: PRODUCT USED FOR UNKNOWN INDICATION
     Route: 058
     Dates: start: 20150110, end: 20150114
  8. RISPERDAL [Concomitant]
     Active Substance: RISPERIDONE

REACTIONS (1)
  - International normalised ratio increased [Recovered/Resolved]
